FAERS Safety Report 23637413 (Version 1)
Quarter: 2024Q1

REPORT INFORMATION
  Report Type: Spontaneous
  Country: CA (occurrence: CA)
  Receive Date: 20240315
  Receipt Date: 20240315
  Transmission Date: 20240409
  Serious: Yes (Other)
  Sender: FDA-Public Use
  Company Number: CA-PFIZER INC-202400063627

PATIENT
  Age: 12 Year
  Sex: Female

DRUGS (3)
  1. SOMATROPIN [Suspect]
     Active Substance: SOMATROPIN
     Indication: Growth hormone deficiency
     Dosage: 700 UG 6X/WEEK
     Route: 058
     Dates: start: 20221215
  2. VALPROIC ACID [Concomitant]
     Active Substance: VALPROIC ACID
     Dosage: 375 MG, 2X/DAY
     Route: 065
  3. LAMOTRIGINE [Concomitant]
     Active Substance: LAMOTRIGINE
     Dosage: 1 DF, 1X/DAY (40 MG IN AM AND 50 MG PM)
     Route: 065

REACTIONS (1)
  - Neoplasm malignant [Recovered/Resolved]
